FAERS Safety Report 9128607 (Version 1)
Quarter: 2013Q1

REPORT INFORMATION
  Report Type: Spontaneous
  Country: US (occurrence: US)
  Receive Date: 20130125
  Receipt Date: 20130125
  Transmission Date: 20140127
  Serious: Yes (Other)
  Sender: FDA-Public Use
  Company Number: US-ABBOTT-13P-163-1038662-00

PATIENT
  Age: 20 Week
  Sex: Female

DRUGS (4)
  1. CODEINE [Suspect]
     Indication: PRODUCT USED FOR UNKNOWN INDICATION
  2. HEROIN [Suspect]
     Indication: PRODUCT USED FOR UNKNOWN INDICATION
  3. COCAINE [Suspect]
     Indication: PRODUCT USED FOR UNKNOWN INDICATION
  4. UNSPECIFIED INGREDIENT [Suspect]

REACTIONS (4)
  - Intentional drug misuse [Unknown]
  - Road traffic accident [Unknown]
  - Loss of consciousness [Unknown]
  - Drug abuse [None]
